FAERS Safety Report 9708616 (Version 2)
Quarter: 2013Q4

REPORT INFORMATION
  Report Type: Spontaneous
  Country: DK (occurrence: IT)
  Receive Date: 20131125
  Receipt Date: 20131206
  Transmission Date: 20140711
  Serious: Yes (Hospitalization)
  Sender: FDA-Public Use
  Company Number: IT-FRI-1000051674

PATIENT
  Age: 77 Year
  Sex: Male

DRUGS (4)
  1. ESCITALOPRAM [Suspect]
     Indication: DEPRESSION
     Dosage: 10 MG
     Route: 048
     Dates: start: 20130101, end: 20130814
  2. LORMETAZEPAM [Suspect]
     Dosage: 1 DF
     Route: 049
     Dates: start: 20130101, end: 20130814
  3. XANAX [Suspect]
     Dosage: 1 DF
     Route: 048
     Dates: start: 20130101, end: 20130814
  4. CONTROL [Suspect]
     Route: 048
     Dates: start: 20130101, end: 20130814

REACTIONS (1)
  - Sopor [Recovered/Resolved]
